FAERS Safety Report 19608191 (Version 2)
Quarter: 2021Q3

REPORT INFORMATION
  Report Type: Spontaneous
  Country: US (occurrence: US)
  Receive Date: 20210726
  Receipt Date: 20210905
  Transmission Date: 20211014
  Serious: Yes (Life-Threatening, Other)
  Sender: FDA-Public Use
  Company Number: US-CELLTRION INC.-2021US009873

PATIENT

DRUGS (7)
  1. BENADRYL [Concomitant]
     Active Substance: DIPHENHYDRAMINE HYDROCHLORIDE
  2. VITAMIN E [Concomitant]
     Active Substance: .ALPHA.-TOCOPHEROL
  3. INFLECTRA [Suspect]
     Active Substance: INFLIXIMAB-DYYB
     Dosage: 2ND INFUSION
     Route: 065
     Dates: start: 20210716
  4. VITAMIN D [Concomitant]
     Active Substance: VITAMIN D NOS
  5. VITAMIN C [Concomitant]
     Active Substance: ASCORBIC ACID
  6. INFLECTRA [Suspect]
     Active Substance: INFLIXIMAB-DYYB
     Indication: PRODUCT USED FOR UNKNOWN INDICATION
     Dosage: 1ST INFUSION
     Route: 065
  7. ZINC. [Concomitant]
     Active Substance: ZINC

REACTIONS (19)
  - Back pain [Unknown]
  - Abdominal pain upper [Unknown]
  - Dizziness [Unknown]
  - Urticaria [Unknown]
  - Myocardial infarction [Unknown]
  - Swelling face [Unknown]
  - Balance disorder [Not Recovered/Not Resolved]
  - Loss of consciousness [Unknown]
  - Feeling cold [Unknown]
  - Illness [Unknown]
  - Hypotension [Unknown]
  - Nausea [Unknown]
  - Feeling abnormal [Recovering/Resolving]
  - Pruritus [Unknown]
  - Erythema [Unknown]
  - Lip swelling [Unknown]
  - Infusion related reaction [Not Recovered/Not Resolved]
  - Tremor [Not Recovered/Not Resolved]
  - Blood potassium decreased [Unknown]

NARRATIVE: CASE EVENT DATE: 20210716
